FAERS Safety Report 8943253 (Version 1)
Quarter: 2012Q4

REPORT INFORMATION
  Report Type: Report from Study
  Country: KR (occurrence: KR)
  Receive Date: 20121204
  Receipt Date: 20121204
  Transmission Date: 20130627
  Serious: Yes (Hospitalization)
  Sender: FDA-Public Use
  Company Number: KR-BAYER-2012-123505

PATIENT
  Age: 54 Year
  Sex: Male
  Weight: 71.1 kg

DRUGS (6)
  1. NEXAVAR [Suspect]
     Indication: CARCINOMA HEPATOCELLULAR
     Dosage: Daily dose 800 mg
     Route: 048
     Dates: start: 20111102, end: 20111222
  2. RANITIDINE HYDROCHLORIDE [Concomitant]
     Dosage: 300 mg, UNK
     Dates: start: 20111103
  3. GASLON N [Concomitant]
     Dosage: 4 mg, UNK
     Dates: start: 20111103
  4. GASMOTIN [Concomitant]
     Dosage: 15 mg, UNK
     Dates: start: 20111103
  5. ALBIS [Concomitant]
     Dosage: 2 tablets UNK
     Dates: start: 20111128
  6. PENNEL [Concomitant]
     Indication: SUPPORTIVE CARE
     Dosage: 75 mg, UNK

REACTIONS (2)
  - Mesenteric vein thrombosis [Not Recovered/Not Resolved]
  - Abdominal pain [Not Recovered/Not Resolved]
